FAERS Safety Report 10774909 (Version 3)
Quarter: 2015Q2

REPORT INFORMATION
  Report Type: Spontaneous
  Country: US (occurrence: US)
  Receive Date: 20150209
  Receipt Date: 20150424
  Transmission Date: 20150821
  Serious: Yes (Hospitalization, Other)
  Sender: FDA-Public Use
  Company Number: US-AMGEN-USASP2015010917

PATIENT
  Age: 32 Year
  Sex: Female
  Weight: 113.38 kg

DRUGS (4)
  1. ZOFRAN                             /00955301/ [Concomitant]
     Active Substance: ONDANSETRON HYDROCHLORIDE
     Indication: NAUSEA
     Dosage: 8 MG, PRN
     Route: 048
     Dates: start: 201206, end: 20130305
  2. PHENERGAN [Concomitant]
     Active Substance: PROMETHAZINE HYDROCHLORIDE
     Indication: NAUSEA
     Dosage: 25 MG, PRN
     Route: 048
     Dates: start: 201206, end: 20130305
  3. ZYRTEC [Concomitant]
     Active Substance: CETIRIZINE HYDROCHLORIDE
     Indication: HYPERSENSITIVITY
     Dosage: 10 MG, DAILY
     Route: 048
     Dates: start: 200901
  4. ENBREL [Suspect]
     Active Substance: ETANERCEPT
     Indication: ANKYLOSING SPONDYLITIS
     Dosage: 50 MG, QWK
     Route: 058
     Dates: start: 200910, end: 201011

REACTIONS (7)
  - Caesarean section [Unknown]
  - Cervix disorder [Unknown]
  - Polycystic ovaries [Unknown]
  - Vomiting [Unknown]
  - Weight gain poor [Unknown]
  - Cervix carcinoma [Unknown]
  - Iritis [Unknown]

NARRATIVE: CASE EVENT DATE: 2010
